FAERS Safety Report 10790554 (Version 1)
Quarter: 2015Q1

REPORT INFORMATION
  Report Type: Spontaneous
  Country: US (occurrence: US)
  Receive Date: 20150212
  Receipt Date: 20150212
  Transmission Date: 20150721
  Serious: Yes (Other)
  Sender: FDA-Public Use
  Company Number: US-GLAXOSMITHKLINE INC.-US2015GSK018433

PATIENT
  Age: 59 Year
  Sex: Female
  Weight: 97.52 kg

DRUGS (8)
  1. TAFINLAR [Suspect]
     Active Substance: DABRAFENIB MESYLATE
     Indication: BRAIN NEOPLASM MALIGNANT
     Dosage: 75 MG, BID
     Dates: start: 201411, end: 201501
  2. FISH OIL [Concomitant]
     Active Substance: FISH OIL
  3. VITAMIN B COMPLEX [Concomitant]
     Active Substance: CYANOCOBALAMIN\DEXPANTHENOL\NIACINAMIDE\PYRIDOXINE HYDROCHLORIDE\RIBOFLAVIN 5^-PHOSPHATE SODIUM\THIAMINE HYDROCHLORIDE\VITAMIN B COMPLEX
  4. OMEPRAZOLE. [Concomitant]
     Active Substance: OMEPRAZOLE
  5. MEKINIST [Suspect]
     Active Substance: TRAMETINIB DIMETHYL SULFOXIDE
     Indication: BRAIN NEOPLASM MALIGNANT
     Dosage: 1.5 MG, QD
     Dates: start: 201411, end: 201501
  6. ACIDOPHILUS [Concomitant]
     Active Substance: LACTOBACILLUS ACIDOPHILUS
  7. ADVIL [Concomitant]
     Active Substance: IBUPROFEN
  8. PROCHLORPERAZINE. [Concomitant]
     Active Substance: PROCHLORPERAZINE

REACTIONS (1)
  - Brain neoplasm [Unknown]

NARRATIVE: CASE EVENT DATE: 201501
